FAERS Safety Report 5085141-0 (Version None)
Quarter: 2006Q3

REPORT INFORMATION
  Report Type: 
  Country: None (occurrence: None)
  Receive Date: 20060720
  Receipt Date: 20050624
  Transmission Date: 20061208
  Serious: Yes (Hospitalization)
  Sender: FDA-Public Use
  Company Number: 2005061837

PATIENT
  Age: 41 Year
  Sex: Male

DRUGS (3)
  1. CELEBREX [Suspect]
     Indication: SPONDYLITIS
     Dosage: 200 MG (200 MG,1 IN  1 D),ORAL
     Route: 048
     Dates: start: 20020201, end: 20020201
  2. CYCLOBENZAPRINE HCL [Concomitant]
  3. CARISOLPRODOL (CARISOLPRODOL) [Concomitant]

REACTIONS (4)
  - CARDIAC DISORDER [None]
  - CHEST PAIN [None]
  - HEADACHE [None]
  - MUSCULOSKELETAL DISCOMFORT [None]
